FAERS Safety Report 21693127 (Version 2)
Quarter: 2025Q3

REPORT INFORMATION
  Report Type: Spontaneous
  Country: EU (occurrence: EU)
  Receive Date: 20221207
  Receipt Date: 20250723
  Transmission Date: 20251020
  Serious: Yes (Hospitalization)
  Sender: NOVARTIS
  Company Number: EU-002147023-NVSC2022FR282683

PATIENT
  Age: 51 Year
  Sex: Female

DRUGS (2)
  1. KESIMPTA [Suspect]
     Active Substance: OFATUMUMAB
     Indication: Multiple sclerosis
     Dosage: UNK, QMO (MONTHLY 1ST INJECTION)
     Route: 065
     Dates: start: 20221028, end: 20221028
  2. KESIMPTA [Suspect]
     Active Substance: OFATUMUMAB
     Dosage: UNK, QMO (MONTHLY 2ND INJECTION)
     Route: 065
     Dates: start: 20221104

REACTIONS (3)
  - Hepatic cytolysis [Unknown]
  - Jaundice [Unknown]
  - Nausea [Unknown]

NARRATIVE: CASE EVENT DATE: 20220101
